FAERS Safety Report 16064355 (Version 1)
Quarter: 2019Q1

REPORT INFORMATION
  Report Type: Spontaneous
  Country: US (occurrence: US)
  Receive Date: 20190312
  Receipt Date: 20190312
  Transmission Date: 20190418
  Serious: Yes (Hospitalization)
  Sender: FDA-Public Use
  Company Number: US-ELI_LILLY_AND_COMPANY-US201903004111

PATIENT
  Sex: Female

DRUGS (4)
  1. BASAGLAR [Suspect]
     Active Substance: INSULIN GLARGINE
     Dosage: 10 IU, DAILY
     Route: 058
  2. HUMALOG [Suspect]
     Active Substance: INSULIN LISPRO
     Indication: TYPE 1 DIABETES MELLITUS
     Dosage: UNK UNK, UNKNOWN
     Route: 065
     Dates: start: 1996
  3. BASAGLAR [Suspect]
     Active Substance: INSULIN GLARGINE
     Indication: TYPE 1 DIABETES MELLITUS
     Dosage: 10 IU, DAILY
     Route: 058
     Dates: start: 1996
  4. BASAGLAR [Suspect]
     Active Substance: INSULIN GLARGINE
     Dosage: 10 IU, DAILY
     Route: 058

REACTIONS (5)
  - Cardiac disorder [Unknown]
  - Cardiac failure [Unknown]
  - Accidental underdose [Unknown]
  - Congenital mitochondrial cytopathy [Unknown]
  - Retinitis pigmentosa [Unknown]

NARRATIVE: CASE EVENT DATE: 1998
